FAERS Safety Report 15366105 (Version 2)
Quarter: 2018Q3

REPORT INFORMATION
  Report Type: Spontaneous
  Country: AR (occurrence: AR)
  Receive Date: 20180910
  Receipt Date: 20180917
  Transmission Date: 20181010
  Serious: Yes (Other)
  Sender: FDA-Public Use
  Company Number: PHHY2018AR090298

PATIENT
  Age: 89 Year
  Sex: Female

DRUGS (1)
  1. CARBAMAZEPINE. [Suspect]
     Active Substance: CARBAMAZEPINE
     Indication: TRIGEMINAL NEURALGIA
     Dosage: UNK
     Route: 065

REACTIONS (7)
  - Thrombocytopenia [Recovered/Resolved]
  - Parvovirus B19 infection [Unknown]
  - Drug reaction with eosinophilia and systemic symptoms [Recovered/Resolved]
  - Renal failure [Recovered/Resolved]
  - Purpura [Recovered/Resolved]
  - Skin exfoliation [Recovered/Resolved]
  - Oedema [Recovered/Resolved]
